FAERS Safety Report 8044528-4 (Version None)
Quarter: 2012Q1

REPORT INFORMATION
  Report Type: 
  Country: None (occurrence: None)
  Receive Date: 20120113
  Receipt Date: 20120110
  Transmission Date: 20120608
  Serious: Yes (Other)
  Sender: FDA-Public Use
  Company Number: US-SANOFI-AVENTIS-2012SA001745

PATIENT
  Age: 87 Year
  Sex: Male

DRUGS (3)
  1. MULTAQ [Suspect]
     Indication: CARDIAC PACEMAKER INSERTION
     Route: 048
     Dates: start: 20110601
  2. MULTAQ [Suspect]
     Indication: ATRIAL FIBRILLATION
     Route: 048
     Dates: start: 20110601
  3. MULTAQ [Suspect]
     Indication: CARDIOVERSION
     Route: 048
     Dates: start: 20110601

REACTIONS (3)
  - CYSTITIS [None]
  - URINE FLOW DECREASED [None]
  - PROSTATIC DISORDER [None]
